FAERS Safety Report 16002083 (Version 1)
Quarter: 2019Q1

REPORT INFORMATION
  Report Type: Spontaneous
  Country: US (occurrence: US)
  Receive Date: 20190225
  Receipt Date: 20190225
  Transmission Date: 20190418
  Serious: No
  Sender: FDA-Public Use
  Company Number: US-FRESENIUS KABI-FK201902067

PATIENT
  Age: 68 Year
  Sex: Male
  Weight: 110 kg

DRUGS (1)
  1. SENSORCAINE [Suspect]
     Active Substance: BUPIVACAINE HYDROCHLORIDE
     Indication: NERVE BLOCK
     Route: 065
     Dates: start: 20190214, end: 20190214

REACTIONS (1)
  - Drug ineffective [Unknown]

NARRATIVE: CASE EVENT DATE: 20190214
